FAERS Safety Report 5765134-8 (Version None)
Quarter: 2008Q2

REPORT INFORMATION
  Report Type: 
  Country: None (occurrence: None)
  Receive Date: 20080611
  Receipt Date: 20080529
  Transmission Date: 20081010
  Serious: Yes (Hospitalization)
  Sender: FDA-Public Use
  Company Number: IT-TEVA-172206ISR

PATIENT
  Sex: Male

DRUGS (7)
  1. FLUOROURACIL [Suspect]
     Indication: GASTRIC CANCER
     Route: 042
     Dates: start: 20080401
  2. FLUOROURACIL [Suspect]
     Route: 042
     Dates: start: 20080401
  3. FOLINIC ACID [Suspect]
     Indication: GASTRIC CANCER
     Route: 042
     Dates: start: 20080401
  4. IRINOTECAN HCL [Suspect]
     Indication: GASTRIC CANCER
     Route: 042
     Dates: start: 20080401
  5. ISOSORBIDE DINITRATE [Concomitant]
  6. WARFARIN SODIUM [Concomitant]
  7. FOSINOPRIL SODIUM [Concomitant]

REACTIONS (1)
  - PRESYNCOPE [None]
